FAERS Safety Report 12954375 (Version 2)
Quarter: 2018Q2

REPORT INFORMATION
  Report Type: Spontaneous
  Country: US (occurrence: US)
  Receive Date: 20161118
  Receipt Date: 20180618
  Transmission Date: 20180711
  Serious: No
  Sender: FDA-Public Use
  Company Number: US-PFIZER INC-2016528949

PATIENT
  Age: 53 Year
  Sex: Female

DRUGS (1)
  1. XELJANZ [Suspect]
     Active Substance: TOFACITINIB CITRATE
     Dosage: 5 MG, 1X/DAY
     Dates: end: 201806

REACTIONS (6)
  - Pyrexia [Unknown]
  - Fatigue [Unknown]
  - Product use issue [Unknown]
  - Ill-defined disorder [Unknown]
  - Condition aggravated [Unknown]
  - Joint swelling [Unknown]

NARRATIVE: CASE EVENT DATE: 20161111
